FAERS Safety Report 4812377-3 (Version None)
Quarter: 2005Q4

REPORT INFORMATION
  Report Type: 
  Country: None (occurrence: None)
  Receive Date: 20051027
  Receipt Date: 20051027
  Transmission Date: 20060501
  Serious: Yes (Disabling)
  Sender: FDA-Public Use
  Company Number: None

PATIENT
  Sex: Male
  Weight: 54.4316 kg

DRUGS (17)
  1. ETHAMBUTOL [Suspect]
     Dosage: 400 MG   3X/DAY   PO
     Route: 048
     Dates: start: 20050401
  2. KALETRA [Concomitant]
  3. TRUVADA [Concomitant]
  4. CIPROFLOXACIN [Concomitant]
  5. AZITHROMYCIN [Concomitant]
  6. MYCOBUTIN [Concomitant]
  7. DAPSONE [Concomitant]
  8. ANDROGEL [Concomitant]
  9. AMBIEN [Concomitant]
  10. LEXAPRO [Concomitant]
  11. ZANTAC [Concomitant]
  12. ZYRTEC [Concomitant]
  13. POTASSIUM [Concomitant]
  14. KYTRIL [Concomitant]
  15. LEUKINE [Concomitant]
  16. PROCRIT [Concomitant]
  17. DOXIL [Concomitant]

REACTIONS (3)
  - ARTHRALGIA [None]
  - DIFFICULTY IN WALKING [None]
  - PAIN [None]
